FAERS Safety Report 9849088 (Version 1)
Quarter: 2013Q4

REPORT INFORMATION
  Report Type: Spontaneous
  Country: US (occurrence: None)
  Receive Date: 20131226
  Receipt Date: 20131226
  Transmission Date: 20140711
  Serious: Yes (Other)
  Sender: FDA-Public Use
  Company Number: PHEH2012US022607

PATIENT
  Age: 4 Year
  Sex: Male

DRUGS (1)
  1. TRILEPTAL FMI [Suspect]
     Indication: CONVULSION
     Route: 048

REACTIONS (2)
  - Epilepsy [None]
  - Product taste abnormal [None]
